FAERS Safety Report 6636782-8 (Version None)
Quarter: 2010Q1

REPORT INFORMATION
  Report Type: 
  Country: None (occurrence: None)
  Receive Date: 20100316
  Receipt Date: 20100311
  Transmission Date: 20100710
  Serious: Yes (Hospitalization)
  Sender: FDA-Public Use
  Company Number: US-PERRIGO-10US007837

PATIENT
  Sex: Female
  Weight: 49.887 kg

DRUGS (1)
  1. NICOTINE POLACRILEX 4MG MINT 422 [Suspect]
     Indication: SMOKING CESSATION THERAPY
     Dosage: 12 MG, QD
     Route: 002
     Dates: start: 20090911

REACTIONS (6)
  - CEREBROVASCULAR ACCIDENT [None]
  - DISORIENTATION [None]
  - HYPERTENSION [None]
  - NICOTINE DEPENDENCE [None]
  - PAIN IN EXTREMITY [None]
  - SPEECH DISORDER [None]
